FAERS Safety Report 6508935-0 (Version None)
Quarter: 2009Q4

REPORT INFORMATION
  Report Type: 
  Country: None (occurrence: None)
  Receive Date: 20091221
  Receipt Date: 20090921
  Transmission Date: 20100525
  Serious: No
  Sender: FDA-Public Use
  Company Number: US-ASTRAZENECA-2009SE14306

PATIENT
  Age: 86 Year
  Sex: Male
  Weight: 79.4 kg

DRUGS (3)
  1. CRESTOR [Suspect]
     Route: 048
  2. ACTIFEDIMINE [Concomitant]
     Dosage: PRN
     Route: 048
  3. LAXATIVE [Concomitant]
     Dosage: PRN
     Route: 048

REACTIONS (2)
  - ABDOMINAL PAIN UPPER [None]
  - INSOMNIA [None]
